FAERS Safety Report 11926967 (Version 1)
Quarter: 2016Q1

REPORT INFORMATION
  Report Type: Spontaneous
  Country: BR (occurrence: BR)
  Receive Date: 20160119
  Receipt Date: 20160119
  Transmission Date: 20160526
  Serious: Yes (Other)
  Sender: FDA-Public Use
  Company Number: BR-JNJFOC-20160112074

PATIENT
  Age: 56 Year
  Sex: Female

DRUGS (1)
  1. SIMPONI [Suspect]
     Active Substance: GOLIMUMAB
     Indication: RHEUMATOID ARTHRITIS
     Dosage: SINCE ONE YEAR AGO
     Route: 058
     Dates: start: 2015

REACTIONS (2)
  - Laceration [Unknown]
  - Lower extremity mass [Unknown]

NARRATIVE: CASE EVENT DATE: 201512
